FAERS Safety Report 15772430 (Version 2)
Quarter: 2019Q1

REPORT INFORMATION
  Report Type: Report from Study
  Country: MX (occurrence: MX)
  Receive Date: 20181228
  Receipt Date: 20190125
  Transmission Date: 20190417
  Serious: Yes (Other)
  Sender: FDA-Public Use
  Company Number: PHHY2018MX197031

PATIENT
  Age: 68 Year
  Sex: Female

DRUGS (2)
  1. COSENTYX [Suspect]
     Active Substance: SECUKINUMAB
     Indication: PSORIATIC ARTHROPATHY
     Dosage: 150 MG, EVERY 8 DAYS
     Route: 065
     Dates: start: 201808, end: 201812
  2. HUMIRA [Concomitant]
     Active Substance: ADALIMUMAB
     Indication: PRODUCT USED FOR UNKNOWN INDICATION
     Route: 065

REACTIONS (5)
  - Concomitant disease aggravated [Recovered/Resolved]
  - Inappropriate schedule of product administration [Unknown]
  - Influenza [Recovered/Resolved]
  - Gastritis erosive [Recovered/Resolved]
  - Gastric haemorrhage [Unknown]

NARRATIVE: CASE EVENT DATE: 201812
